FAERS Safety Report 8031004-8 (Version None)
Quarter: 2011Q4

REPORT INFORMATION
  Report Type: 
  Country: None (occurrence: None)
  Receive Date: 20111202
  Receipt Date: 20090729
  Transmission Date: 20120403
  Serious: Yes (Hospitalization, Other)
  Sender: FDA-Public Use
  Company Number: 2009SP017397

PATIENT
  Age: 47 Year
  Sex: Female
  Weight: 88.4514 kg

DRUGS (7)
  1. METFORMIN HCL [Concomitant]
  2. ATACND [Concomitant]
  3. LYRICA [Concomitant]
  4. HYDROCHLOROTHIAZIDE [Concomitant]
  5. NUVARING [Suspect]
     Indication: CONTRACEPTION
     Dosage: 1 DF; VAG
     Route: 067
     Dates: start: 20070325, end: 20070401
  6. NUVARING [Suspect]
     Indication: MENSTRUAL DISORDER
     Dosage: 1 DF; VAG
     Route: 067
     Dates: start: 20070325, end: 20070401
  7. GLUCOPHAGE [Concomitant]

REACTIONS (5)
  - DEEP VEIN THROMBOSIS [None]
  - SLEEP APNOEA SYNDROME [None]
  - BREAST CANCER IN SITU [None]
  - BREAST MASS [None]
  - NERVE COMPRESSION [None]
